FAERS Safety Report 7409119-4 (Version None)
Quarter: 2011Q2

REPORT INFORMATION
  Report Type: 
  Country: None (occurrence: None)
  Receive Date: 20110412
  Receipt Date: 20110404
  Transmission Date: 20111010
  Serious: Yes (Hospitalization)
  Sender: FDA-Public Use
  Company Number: US-B.I. PHARMACEUTICALS,INC./RIDGEFIELD-2011-BP-09974BP

PATIENT
  Sex: Male

DRUGS (7)
  1. FLOMAX [Suspect]
     Dosage: 1.2 MG
     Route: 048
     Dates: start: 20110201, end: 20110214
  2. FLONASE [Concomitant]
     Indication: MULTIPLE ALLERGIES
  3. FLOMAX [Suspect]
     Dosage: 0.8 MG
     Route: 048
     Dates: start: 20060101, end: 20110201
  4. NEXIUM [Concomitant]
     Indication: ULCER
  5. FLOMAX [Suspect]
     Dosage: 0.4 MG
     Route: 048
     Dates: start: 20110216
  6. LOTREL [Concomitant]
     Indication: HYPERTENSION
  7. FLOMAX [Suspect]
     Indication: BENIGN PROSTATIC HYPERPLASIA
     Dosage: 0.4 MG
     Route: 048
     Dates: start: 20020101, end: 20060101

REACTIONS (5)
  - HYPOTENSION [None]
  - BENIGN PROSTATIC HYPERPLASIA [None]
  - DRUG INEFFECTIVE [None]
  - ATRIAL FIBRILLATION [None]
  - LOSS OF CONSCIOUSNESS [None]
